FAERS Safety Report 12517774 (Version 9)
Quarter: 2021Q4

REPORT INFORMATION
  Report Type: Spontaneous
  Country: US (occurrence: US)
  Receive Date: 20160630
  Receipt Date: 20211229
  Transmission Date: 20220303
  Serious: Yes (Other)
  Sender: FDA-Public Use
  Company Number: US-TAKEDA-2016MPI005855

PATIENT
  Sex: Female

DRUGS (16)
  1. NINLARO [Suspect]
     Active Substance: IXAZOMIB CITRATE
     Indication: Plasma cell myeloma
     Dosage: 4 MILLIGRAM, 1/WEEK
     Route: 048
     Dates: start: 201602
  2. NINLARO [Suspect]
     Active Substance: IXAZOMIB CITRATE
     Dosage: 3 MILLIGRAM
     Route: 048
     Dates: start: 20170125
  3. NINLARO [Suspect]
     Active Substance: IXAZOMIB CITRATE
     Dosage: UNK UNK, 1/WEEK
     Route: 048
     Dates: start: 20170223
  4. NINLARO [Suspect]
     Active Substance: IXAZOMIB CITRATE
     Dosage: 3 MILLIGRAM
     Route: 048
     Dates: start: 20190222
  5. DEXAMETHASONE [Suspect]
     Active Substance: DEXAMETHASONE
     Indication: Plasma cell myeloma
     Dosage: 40 MILLIGRAM
     Route: 065
  6. DEXAMETHASONE [Suspect]
     Active Substance: DEXAMETHASONE
     Dosage: 2 MILLIGRAM
     Route: 065
  7. REVLIMID [Suspect]
     Active Substance: LENALIDOMIDE
     Indication: Plasma cell myeloma
     Dosage: 25 MILLIGRAM, QD
     Route: 048
     Dates: start: 201510
  8. REVLIMID [Suspect]
     Active Substance: LENALIDOMIDE
     Dosage: 25 MILLIGRAM
     Route: 048
     Dates: start: 20190124
  9. CALCIUM CARBONATE [Concomitant]
     Active Substance: CALCIUM CARBONATE
     Indication: Product used for unknown indication
     Dosage: 1250 MILLIGRAM
     Route: 065
  10. VITAMINS [Concomitant]
     Active Substance: VITAMINS
     Indication: Product used for unknown indication
     Dosage: UNK
     Route: 065
  11. COENZYME Q10 [Concomitant]
     Active Substance: DIETARY SUPPLEMENT\UBIDECARENONE
     Indication: Product used for unknown indication
     Dosage: 200 MILLIGRAM
     Route: 065
  12. FISH OIL [Concomitant]
     Active Substance: FISH OIL
     Indication: Product used for unknown indication
     Dosage: 1000 MILLIGRAM
     Route: 065
  13. VITAMIN B COMPLEX [Concomitant]
     Active Substance: CYANOCOBALAMIN\DEXPANTHENOL\NIACINAMIDE\PYRIDOXINE HYDROCHLORIDE\RIBOFLAVIN 5^-PHOSPHATE SODIUM\THIA
     Indication: Product used for unknown indication
     Dosage: UNK
     Route: 065
  14. ACYCLOVIR [Concomitant]
     Active Substance: ACYCLOVIR
     Indication: Product used for unknown indication
     Dosage: 200 MILLIGRAM
     Route: 065
  15. VITAMIN D3 [Concomitant]
     Active Substance: CHOLECALCIFEROL
     Indication: Product used for unknown indication
     Dosage: UNK
     Route: 065
  16. ASPIRIN [Concomitant]
     Active Substance: ASPIRIN
     Indication: Product used for unknown indication
     Dosage: 81 MILLIGRAM
     Route: 065

REACTIONS (10)
  - Peripheral nerve injury [Unknown]
  - Neuropathy peripheral [Unknown]
  - Oral herpes [Unknown]
  - Chills [Unknown]
  - Headache [Unknown]
  - Adverse drug reaction [Not Recovered/Not Resolved]
  - Nerve injury [Unknown]
  - Arthralgia [Unknown]
  - Muscle spasms [Unknown]
  - Diarrhoea [Unknown]

NARRATIVE: CASE EVENT DATE: 20160101
